FAERS Safety Report 20390921 (Version 1)
Quarter: 2022Q1

REPORT INFORMATION
  Report Type: Spontaneous
  Country: US (occurrence: None)
  Receive Date: 20220127
  Receipt Date: 20220127
  Transmission Date: 20220423
  Serious: Yes (Hospitalization, Disabling, Other)
  Sender: FDA-Public Use
  Company Number: None

PATIENT
  Age: 24 Year
  Sex: Female
  Weight: 54 kg

DRUGS (1)
  1. CLONAZEPAM [Suspect]
     Active Substance: CLONAZEPAM
     Indication: Panic disorder
     Dosage: OTHER QUANTITY : 1 TABLET(S);?FREQUENCY : AS NEEDED;?
     Route: 060

REACTIONS (9)
  - Depression [None]
  - Suicidal ideation [None]
  - Mental impairment [None]
  - Neuralgia [None]
  - Withdrawal syndrome [None]
  - Pain [None]
  - Migraine [None]
  - Seizure [None]
  - Quality of life decreased [None]

NARRATIVE: CASE EVENT DATE: 20220126
